FAERS Safety Report 17227910 (Version 1)
Quarter: 2019Q4

REPORT INFORMATION
  Report Type: Spontaneous
  Country: US (occurrence: US)
  Receive Date: 20191210
  Receipt Date: 20191210
  Transmission Date: 20200122
  Serious: No
  Sender: FDA-Public Use
  Company Number: None

PATIENT
  Sex: Female

DRUGS (1)
  1. PROGESTERONE/OIL 50MG/ML AUROMEDICS PHARMA [Suspect]
     Active Substance: PROGESTERONE
     Indication: INFERTILITY FEMALE
     Route: 030
     Dates: start: 20191125

REACTIONS (3)
  - Insomnia [None]
  - Musculoskeletal pain [None]
  - Rash pruritic [None]
